FAERS Safety Report 5158008-7 (Version None)
Quarter: 2006Q4

REPORT INFORMATION
  Report Type: 
  Country: None (occurrence: None)
  Receive Date: 20061115
  Receipt Date: 20061108
  Transmission Date: 20070319
  Serious: Yes (Disabling)
  Sender: FDA-Public Use
  Company Number: 2006094965

PATIENT
  Age: 65 Year
  Sex: Female

DRUGS (8)
  1. XALATAN [Suspect]
     Indication: GLAUCOMA
     Dosage: (FREQUENCY:  NOCTE); OPHTHALMIC
     Route: 047
     Dates: start: 20050601, end: 20060601
  2. LOSEC      (OMEPRAZOLE) [Concomitant]
  3. SIMVASTATIN [Concomitant]
  4. METFORMIN HCL [Concomitant]
  5. METOPROLOL TARTRATE [Concomitant]
  6. BENDROFLUAZIDE (BENDROFLUMETHIAZIDE) [Concomitant]
  7. QUINAPRIL [Concomitant]
  8. OXYBUTYNIN CHLORIDE [Concomitant]

REACTIONS (1)
  - HALLUCINATION, VISUAL [None]
